APPROVED DRUG PRODUCT: SODIUM PHENYLBUTYRATE
Active Ingredient: SODIUM PHENYLBUTYRATE
Strength: 500MG
Dosage Form/Route: TABLET;ORAL
Application: A090910 | Product #001
Applicant: ALVOGEN INC
Approved: Nov 18, 2011 | RLD: No | RS: No | Type: DISCN